FAERS Safety Report 7641074-4 (Version None)
Quarter: 2011Q3

REPORT INFORMATION
  Report Type: 
  Country: None (occurrence: None)
  Receive Date: 20110728
  Receipt Date: 20110722
  Transmission Date: 20111222
  Serious: Yes (Death, Hospitalization, Other)
  Sender: FDA-Public Use
  Company Number: FR-BRISTOL-MYERS SQUIBB COMPANY-15911258

PATIENT
  Age: 86 Year
  Sex: Female

DRUGS (9)
  1. ZOLPIDEM [Concomitant]
     Indication: INSOMNIA
     Dosage: 1 DF: ZOLPIDEM 0.5/D
     Route: 048
  2. BISOPROLOL FUMARATE [Concomitant]
     Indication: CARDIAC FAILURE
     Route: 048
  3. IRBESARTAN [Suspect]
     Indication: HYPERTENSION
     Route: 048
  4. LANTUS [Concomitant]
     Indication: DIABETES MELLITUS
     Route: 058
  5. KEPPRA [Concomitant]
     Indication: EPILEPSY
     Route: 048
  6. NEURONTIN [Concomitant]
     Indication: EPILEPSY
     Route: 048
  7. FUROSEMIDE [Interacting]
     Indication: HYPERTENSION
     Route: 048
     Dates: end: 20110622
  8. EUTHYRAL [Concomitant]
     Indication: HYPOTHYROIDISM
     Route: 048
  9. PREVISCAN [Concomitant]
     Dosage: PREVISCAN 20 MG TABLET (FLUINDIONE) 0.25 TABLET
     Route: 048

REACTIONS (6)
  - LUNG DISORDER [None]
  - RESPIRATORY DISTRESS [None]
  - ACUTE PULMONARY OEDEMA [None]
  - DEHYDRATION [None]
  - RENAL FAILURE ACUTE [None]
  - DRUG INTERACTION [None]
